FAERS Safety Report 16637063 (Version 3)
Quarter: 2025Q3

REPORT INFORMATION
  Report Type: Spontaneous
  Country: EU (occurrence: EU)
  Receive Date: 20190726
  Receipt Date: 20250805
  Transmission Date: 20251020
  Serious: Yes (Hospitalization)
  Sender: MYLAN
  Company Number: EU-ACCORD-107390

PATIENT
  Age: 40 Year
  Sex: Female

DRUGS (16)
  1. MIRTAZAPINE [Suspect]
     Active Substance: MIRTAZAPINE
     Indication: Depression
  2. MIRTAZAPINE [Suspect]
     Active Substance: MIRTAZAPINE
     Route: 065
  3. MIRTAZAPINE [Suspect]
     Active Substance: MIRTAZAPINE
     Route: 065
  4. MIRTAZAPINE [Suspect]
     Active Substance: MIRTAZAPINE
  5. QUETIAPINE [Suspect]
     Active Substance: QUETIAPINE
     Indication: Depression
  6. QUETIAPINE [Suspect]
     Active Substance: QUETIAPINE
     Route: 065
  7. QUETIAPINE [Suspect]
     Active Substance: QUETIAPINE
     Route: 065
  8. QUETIAPINE [Suspect]
     Active Substance: QUETIAPINE
  9. CLONAZEPAM [Suspect]
     Active Substance: CLONAZEPAM
     Indication: Epilepsy
  10. CLONAZEPAM [Suspect]
     Active Substance: CLONAZEPAM
     Indication: Depression
     Route: 065
  11. CLONAZEPAM [Suspect]
     Active Substance: CLONAZEPAM
     Route: 065
  12. CLONAZEPAM [Suspect]
     Active Substance: CLONAZEPAM
  13. BUPRENORPHINE [Suspect]
     Active Substance: BUPRENORPHINE
     Indication: Product used for unknown indication
  14. BUPRENORPHINE [Suspect]
     Active Substance: BUPRENORPHINE
     Route: 065
  15. BUPRENORPHINE [Suspect]
     Active Substance: BUPRENORPHINE
     Route: 065
  16. BUPRENORPHINE [Suspect]
     Active Substance: BUPRENORPHINE

REACTIONS (3)
  - Toxicity to various agents [Unknown]
  - Radial nerve palsy [Unknown]
  - Off label use [Unknown]
